FAERS Safety Report 8986788 (Version 1)
Quarter: 2012Q4

REPORT INFORMATION
  Report Type: Spontaneous
  Country: US (occurrence: None)
  Receive Date: 20121219
  Receipt Date: 20121219
  Transmission Date: 20130627
  Serious: Yes (Other)
  Sender: FDA-Public Use
  Company Number: None

PATIENT
  Age: 33 Year
  Sex: Female
  Weight: 76.66 kg

DRUGS (1)
  1. MORPHINE SULFATE CONTROLLED RELEASE [Suspect]
     Indication: CHRONIC PAIN
     Dosage: 30 mg 2 x daily po
     Route: 048
     Dates: start: 20121212, end: 20121218

REACTIONS (3)
  - Product quality issue [None]
  - Drug ineffective [None]
  - Poor quality drug administered [None]
